FAERS Safety Report 15642829 (Version 1)
Quarter: 2018Q4

REPORT INFORMATION
  Report Type: Spontaneous
  Country: JP (occurrence: JP)
  Receive Date: 20181121
  Receipt Date: 20181121
  Transmission Date: 20190205
  Serious: Yes (Death, Hospitalization)
  Sender: FDA-Public Use
  Company Number: JP-ROCHE-2211455

PATIENT
  Age: 52 Year
  Sex: Female
  Weight: 41 kg

DRUGS (6)
  1. DECADRON [Concomitant]
     Active Substance: DEXAMETHASONE
     Dosage: DOSAGE IS UNCERTAIN.
     Route: 065
     Dates: start: 20170801, end: 20171121
  2. CARBOPLATIN. [Concomitant]
     Active Substance: CARBOPLATIN
     Indication: CERVIX CARCINOMA
     Dosage: DOSAGE IS UNCERTAIN.
     Route: 041
     Dates: start: 20170704, end: 20171121
  3. AVASTIN [Suspect]
     Active Substance: BEVACIZUMAB
     Indication: CERVIX CARCINOMA
     Dosage: ON 21/NOV/2017, RECEIVED MOST RECENT DOSE OF BEVACIZUMAB.
     Route: 041
     Dates: start: 20170801
  4. FILGRASTIM [Concomitant]
     Active Substance: FILGRASTIM
     Dosage: DOSAGE IS UNCERTAIN.
     Route: 065
     Dates: start: 20170919, end: 20170919
  5. LOXOPROFEN [Suspect]
     Active Substance: LOXOPROFEN
     Indication: PRODUCT USED FOR UNKNOWN INDICATION
     Dosage: ON 16/JAN/2018, RECEIVED MOST RECENT DOSE OF LOXOPROFEN
     Route: 048
     Dates: start: 20170815
  6. TAXOL [Concomitant]
     Active Substance: PACLITAXEL
     Indication: CERVIX CARCINOMA
     Dosage: DOSAGE IS UNCERTAIN.
     Route: 041
     Dates: start: 20170704, end: 20171121

REACTIONS (4)
  - Female genital tract fistula [Not Recovered/Not Resolved]
  - Uterine fistula [Not Recovered/Not Resolved]
  - Metastases to bone [Unknown]
  - Cervix carcinoma [Fatal]

NARRATIVE: CASE EVENT DATE: 20180318
